FAERS Safety Report 17564878 (Version 1)
Quarter: 2020Q1

REPORT INFORMATION
  Report Type: Spontaneous
  Country: US (occurrence: US)
  Receive Date: 20200320
  Receipt Date: 20200320
  Transmission Date: 20200409
  Serious: No
  Sender: FDA-Public Use
  Company Number: US-MACLEODS PHARMACEUTICALS US LTD-MAC2020025706

PATIENT

DRUGS (1)
  1. OLANZAPINE 2.5MG TABLET [Suspect]
     Active Substance: OLANZAPINE
     Indication: SLEEP DISORDER
     Dosage: 2.5 MILLIGRAM
     Route: 065

REACTIONS (5)
  - Anxiety [Unknown]
  - Intercepted product administration error [Unknown]
  - Menstrual disorder [Unknown]
  - Drug ineffective [Unknown]
  - Incorrect dose administered [Unknown]
